FAERS Safety Report 17523981 (Version 1)
Quarter: 2020Q1

REPORT INFORMATION
  Report Type: Spontaneous
  Country: US (occurrence: US)
  Receive Date: 20200311
  Receipt Date: 20200311
  Transmission Date: 20200409
  Serious: Yes (Other)
  Sender: FDA-Public Use
  Company Number: US-APOTEX-2020AP008428

PATIENT
  Age: 61 Year
  Sex: Female

DRUGS (1)
  1. DASATINIB. [Suspect]
     Active Substance: DASATINIB
     Indication: PRODUCT USED FOR UNKNOWN INDICATION
     Dosage: 50 MG, QD
     Route: 065

REACTIONS (6)
  - Back pain [Unknown]
  - Therapeutic product effect incomplete [Unknown]
  - Nephrolithiasis [Unknown]
  - Food intolerance [Unknown]
  - Rosacea [Unknown]
  - Adverse event [Unknown]
